FAERS Safety Report 23042787 (Version 2)
Quarter: 2023Q4

REPORT INFORMATION
  Report Type: Report from Study
  Country: US (occurrence: US)
  Receive Date: 20231009
  Receipt Date: 20231101
  Transmission Date: 20240110
  Serious: Yes (Hospitalization, Other)
  Sender: FDA-Public Use
  Company Number: US-ABBVIE-5437552

PATIENT
  Age: 91 Year
  Sex: Female
  Weight: 56.245 kg

DRUGS (18)
  1. SKYRIZI [Suspect]
     Active Substance: RISANKIZUMAB-RZAA
     Indication: Psoriasis
     Dosage: LAST ADMIN DATE JUL 2022
     Route: 058
     Dates: start: 20220701
  2. SKYRIZI [Suspect]
     Active Substance: RISANKIZUMAB-RZAA
     Route: 058
     Dates: start: 20220712
  3. VITAMIN D3 [Concomitant]
     Active Substance: CHOLECALCIFEROL
     Indication: Bone disorder
  4. FISH OIL [Concomitant]
     Active Substance: FISH OIL
     Indication: Supplementation therapy
  5. PLAVIX [Concomitant]
     Active Substance: CLOPIDOGREL BISULFATE
     Indication: Product used for unknown indication
  6. EXCEDRIN [Concomitant]
     Active Substance: ACETAMINOPHEN\ASPIRIN\CAFFEINE
     Indication: Headache
  7. METHOTREXATE [Concomitant]
     Active Substance: METHOTREXATE
     Indication: Arthritis
  8. LOSARTAN [Concomitant]
     Active Substance: LOSARTAN
     Indication: Blood pressure measurement
  9. PROLIA [Concomitant]
     Active Substance: DENOSUMAB
     Indication: Bone disorder
  10. CLOBETASOL PROPIONATE [Concomitant]
     Active Substance: CLOBETASOL PROPIONATE
     Indication: Psoriasis
  11. POTASSIUM [Concomitant]
     Active Substance: POTASSIUM
     Indication: Mineral supplementation
  12. DULOXETINE [Concomitant]
     Active Substance: DULOXETINE
     Indication: Pain
  13. FOLIC ACID [Concomitant]
     Active Substance: FOLIC ACID
     Indication: Vitamin supplementation
  14. MAGNESIUM [Concomitant]
     Active Substance: MAGNESIUM
     Indication: Mineral supplementation
  15. MINERALS\VITAMINS [Concomitant]
     Active Substance: MINERALS\VITAMINS
     Indication: Vitamin supplementation
  16. ATORVASTATIN [Concomitant]
     Active Substance: ATORVASTATIN
     Indication: Blood cholesterol
  17. CALCIUM [Concomitant]
     Active Substance: CALCIUM
     Indication: Mineral supplementation
  18. VITAMIN B2 [Concomitant]
     Active Substance: RIBOFLAVIN
     Indication: Vitamin supplementation

REACTIONS (9)
  - Pelvic fracture [Recovering/Resolving]
  - Confusional state [Recovering/Resolving]
  - Balance disorder [Unknown]
  - Urinary tract infection [Recovering/Resolving]
  - Fall [Recovering/Resolving]
  - Walking aid user [Unknown]
  - Tooth fracture [Not Recovered/Not Resolved]
  - COVID-19 [Recovering/Resolving]
  - Suture insertion [Recovered/Resolved]

NARRATIVE: CASE EVENT DATE: 20230827
